FAERS Safety Report 25077999 (Version 1)
Quarter: 2025Q1

REPORT INFORMATION
  Report Type: Spontaneous
  Country: US (occurrence: US)
  Receive Date: 20250314
  Receipt Date: 20250314
  Transmission Date: 20250408
  Serious: Yes (Other)
  Sender: CHEPLAPHARM
  Company Number: US-CHEPLA-2025003086

PATIENT
  Age: 51 Year
  Sex: Female
  Weight: 59 kg

DRUGS (25)
  1. HYDROXYUREA [Suspect]
     Active Substance: HYDROXYUREA
  2. JAKAFI [Suspect]
     Active Substance: RUXOLITINIB
     Indication: Product dose omission issue
     Dates: start: 20180220
  3. JAKAFI [Suspect]
     Active Substance: RUXOLITINIB
     Indication: Anxiety
     Dates: start: 20180220
  4. JAKAFI [Suspect]
     Active Substance: RUXOLITINIB
     Indication: Headache
     Dates: start: 20180220
  5. JAKAFI [Suspect]
     Active Substance: RUXOLITINIB
     Indication: Polycythaemia vera
     Dates: start: 20180220
  6. JAKAFI [Suspect]
     Active Substance: RUXOLITINIB
     Indication: Wrong technique in product usage process
     Dates: start: 20180220
  7. JAKAFI [Suspect]
     Active Substance: RUXOLITINIB
     Indication: Product dose omission issue
     Dosage: TWICE A DAY; REGIMEN #1?DAILY DOSE: 50 MILLIGRAM
  8. JAKAFI [Suspect]
     Active Substance: RUXOLITINIB
     Indication: Anxiety
     Dosage: TWICE A DAY; REGIMEN #1?DAILY DOSE: 50 MILLIGRAM
  9. JAKAFI [Suspect]
     Active Substance: RUXOLITINIB
     Indication: Headache
     Dosage: TWICE A DAY; REGIMEN #1?DAILY DOSE: 50 MILLIGRAM
  10. JAKAFI [Suspect]
     Active Substance: RUXOLITINIB
     Indication: Polycythaemia vera
     Dosage: TWICE A DAY; REGIMEN #1?DAILY DOSE: 50 MILLIGRAM
  11. JAKAFI [Suspect]
     Active Substance: RUXOLITINIB
     Indication: Wrong technique in product usage process
     Dosage: TWICE A DAY; REGIMEN #1?DAILY DOSE: 50 MILLIGRAM
  12. JAKAFI [Suspect]
     Active Substance: RUXOLITINIB
     Indication: Product dose omission issue
     Dosage: TWICE A DAY; REGIMEN #3?DAILY DOSE: 30 MILLIGRAM
     Route: 048
  13. JAKAFI [Suspect]
     Active Substance: RUXOLITINIB
     Indication: Anxiety
     Dosage: TWICE A DAY; REGIMEN #3?DAILY DOSE: 30 MILLIGRAM
     Route: 048
  14. JAKAFI [Suspect]
     Active Substance: RUXOLITINIB
     Indication: Headache
     Dosage: TWICE A DAY; REGIMEN #3?DAILY DOSE: 30 MILLIGRAM
     Route: 048
  15. JAKAFI [Suspect]
     Active Substance: RUXOLITINIB
     Indication: Polycythaemia vera
     Dosage: TWICE A DAY; REGIMEN #3?DAILY DOSE: 30 MILLIGRAM
     Route: 048
  16. JAKAFI [Suspect]
     Active Substance: RUXOLITINIB
     Indication: Wrong technique in product usage process
     Dosage: TWICE A DAY; REGIMEN #3?DAILY DOSE: 30 MILLIGRAM
     Route: 048
  17. JAKAFI [Suspect]
     Active Substance: RUXOLITINIB
     Indication: Product dose omission issue
     Dosage: TWICE A DAY; REGIMEN #2 ?DAILY DOSE: 40 MILLIGRAM
     Route: 048
  18. JAKAFI [Suspect]
     Active Substance: RUXOLITINIB
     Indication: Anxiety
     Dosage: TWICE A DAY; REGIMEN #2 ?DAILY DOSE: 40 MILLIGRAM
     Route: 048
  19. JAKAFI [Suspect]
     Active Substance: RUXOLITINIB
     Indication: Headache
     Dosage: TWICE A DAY; REGIMEN #2 ?DAILY DOSE: 40 MILLIGRAM
     Route: 048
  20. JAKAFI [Suspect]
     Active Substance: RUXOLITINIB
     Indication: Polycythaemia vera
     Dosage: TWICE A DAY; REGIMEN #2 ?DAILY DOSE: 40 MILLIGRAM
     Route: 048
  21. JAKAFI [Suspect]
     Active Substance: RUXOLITINIB
     Indication: Wrong technique in product usage process
     Dosage: TWICE A DAY; REGIMEN #2 ?DAILY DOSE: 40 MILLIGRAM
     Route: 048
  22. ANAGRELIDE [Suspect]
     Active Substance: ANAGRELIDE
     Indication: Cardiac failure
  23. ASPIRIN [Suspect]
     Active Substance: ASPIRIN
     Indication: Ulcer
  24. ASPIRIN [Suspect]
     Active Substance: ASPIRIN
     Indication: Ulcer
  25. VITAMINS NOS [Concomitant]
     Active Substance: VITAMINS

REACTIONS (5)
  - Neoplasm malignant [Unknown]
  - Crying [Not Recovered/Not Resolved]
  - Skin burning sensation [Unknown]
  - Malaise [Not Recovered/Not Resolved]
  - Platelet count increased [Unknown]
